FAERS Safety Report 17227955 (Version 1)
Quarter: 2019Q4

REPORT INFORMATION
  Report Type: Spontaneous
  Country: US (occurrence: US)
  Receive Date: 20191210
  Receipt Date: 20191210
  Transmission Date: 20200122
  Serious: No
  Sender: FDA-Public Use
  Company Number: None

PATIENT
  Age: 40 Year
  Sex: Female

DRUGS (1)
  1. STELARA [Suspect]
     Active Substance: USTEKINUMAB
     Dosage: ?          OTHER FREQUENCY:UNKNOWN;?
     Route: 058
     Dates: start: 2019

REACTIONS (5)
  - Hypersensitivity [None]
  - Rash [None]
  - Dizziness [None]
  - Abdominal discomfort [None]
  - Lip swelling [None]

NARRATIVE: CASE EVENT DATE: 20191201
